FAERS Safety Report 24080577 (Version 1)
Quarter: 2024Q3

REPORT INFORMATION
  Report Type: Spontaneous
  Country: KR (occurrence: KR)
  Receive Date: 20240711
  Receipt Date: 20240711
  Transmission Date: 20241016
  Serious: Yes (Hospitalization)
  Sender: SANDOZ
  Company Number: KR-SANDOZ-SDZ2024KR063802

PATIENT
  Sex: Male
  Weight: 53 kg

DRUGS (3)
  1. ACETAMINOPHEN [Suspect]
     Active Substance: ACETAMINOPHEN
     Indication: Acute abdomen
     Dosage: 650 MG, QD
     Route: 065
     Dates: start: 20231013, end: 20231013
  2. ALLOPURINOL [Suspect]
     Active Substance: ALLOPURINOL
     Indication: Acute abdomen
     Dosage: 300 MG, QD
     Route: 065
     Dates: start: 20231004, end: 20231009
  3. ZOFRAN [Suspect]
     Active Substance: ONDANSETRON HYDROCHLORIDE
     Indication: Acute abdomen
     Dosage: 1 DF, BID (TABLET)
     Route: 065
     Dates: start: 20231008, end: 20231009

REACTIONS (1)
  - Stevens-Johnson syndrome [Recovering/Resolving]

NARRATIVE: CASE EVENT DATE: 20231105
